FAERS Safety Report 15505313 (Version 1)
Quarter: 2018Q4

REPORT INFORMATION
  Report Type: Spontaneous
  Country: US (occurrence: US)
  Receive Date: 20181010
  Receipt Date: 20181010
  Transmission Date: 20190205
  Serious: No
  Sender: FDA-Public Use
  Company Number: None

PATIENT
  Age: 77 Year
  Sex: Female
  Weight: 53.52 kg

DRUGS (15)
  1. LISINOPRIL 10MG [Concomitant]
     Active Substance: LISINOPRIL
  2. VIBERZI [Suspect]
     Active Substance: ELUXADOLINE
     Indication: IRRITABLE BOWEL SYNDROME
     Dosage: ?          QUANTITY:100 MG MILLIGRAM(S);?
     Dates: start: 20180915, end: 20180926
  3. QUETIAPINE 25MG [Concomitant]
     Active Substance: QUETIAPINE
  4. PROGESTERONE. [Concomitant]
     Active Substance: PROGESTERONE
  5. GLUCOSAMINE [Concomitant]
     Active Substance: GLUCOSAMINE
  6. VITAMIN B12 [Concomitant]
     Active Substance: CYANOCOBALAMIN
  7. CALCIUM 500MG [Concomitant]
  8. MAGNESIUM 500MG [Concomitant]
  9. CYTOMEL 5MCG [Concomitant]
  10. SYNTHROID [Concomitant]
     Active Substance: LEVOTHYROXINE SODIUM
  11. ALOESETRON 0.5 MG (1 OR 2) [Concomitant]
  12. VITAMIN K 200MCG [Concomitant]
  13. VITAMIN D3 1000 IU [Concomitant]
  14. FOCUS SELECT EYE VITAMINS [Concomitant]
  15. TURMERIC [Concomitant]
     Active Substance: HERBALS\TURMERIC

REACTIONS (2)
  - Haemorrhage [None]
  - Therapy cessation [None]

NARRATIVE: CASE EVENT DATE: 20180909
